FAERS Safety Report 18105905 (Version 1)
Quarter: 2020Q3

REPORT INFORMATION
  Report Type: Spontaneous
  Country: CN (occurrence: CN)
  Receive Date: 20200803
  Receipt Date: 20200803
  Transmission Date: 20201103
  Serious: Yes (Other)
  Sender: FDA-Public Use
  Company Number: CN-HQ SPECIALTY-CN-2020INT000087

PATIENT
  Age: 48 Year
  Sex: Female

DRUGS (9)
  1. CISPLATIN. [Suspect]
     Active Substance: CISPLATIN
     Dosage: 75 MG/M2, 1ST AND 2ND DAY, SECOND CYCLE
     Route: 042
     Dates: start: 20171130
  2. CISPLATIN. [Suspect]
     Active Substance: CISPLATIN
     Dosage: 75 MG/M2, 1ST AND 2ND DAY, THIRD CYCLE
     Route: 042
     Dates: start: 20171229
  3. DOCETAXEL. [Suspect]
     Active Substance: DOCETAXEL
     Dosage: 75 MG/M2, 1ST DAY, THIRD CYCLE
     Route: 042
     Dates: start: 20171229
  4. DOCETAXEL. [Suspect]
     Active Substance: DOCETAXEL
     Dosage: 75 MG/M2, 1ST DAY, SECOND CYCLE
     Route: 042
     Dates: start: 20171130
  5. FLUOROURACIL. [Suspect]
     Active Substance: FLUOROURACIL
     Dosage: 500 MG/M2, 1ST TO 5TH DAY, SECOND CYCLE
     Route: 042
     Dates: start: 20171130
  6. CISPLATIN. [Suspect]
     Active Substance: CISPLATIN
     Indication: KERATINISING SQUAMOUS CELL CARCINOMA OF NASOPHARYNX
     Dosage: 75 MG/M2, 1ST AND 2ND DAY, FIRST CYCLE
     Route: 042
     Dates: start: 20171031
  7. FLUOROURACIL. [Suspect]
     Active Substance: FLUOROURACIL
     Dosage: 500 MG/M2, 1ST TO 5TH DAY, THIRD CYCLE
     Route: 042
     Dates: start: 20171229
  8. DOCETAXEL. [Suspect]
     Active Substance: DOCETAXEL
     Indication: KERATINISING SQUAMOUS CELL CARCINOMA OF NASOPHARYNX
     Dosage: 75 MG/M2, 1ST DAY, FIRST CYCLE
     Route: 042
     Dates: start: 20171031
  9. FLUOROURACIL. [Suspect]
     Active Substance: FLUOROURACIL
     Indication: KERATINISING SQUAMOUS CELL CARCINOMA OF NASOPHARYNX
     Dosage: 500 MG/M2, 1ST TO 5TH DAY, FIRST CYCLE
     Route: 042
     Dates: start: 20171031

REACTIONS (1)
  - Optic ischaemic neuropathy [Recovering/Resolving]

NARRATIVE: CASE EVENT DATE: 201711
